FAERS Safety Report 12699588 (Version 1)
Quarter: 2016Q3

REPORT INFORMATION
  Report Type: Other
  Country: US (occurrence: US)
  Receive Date: 20160830
  Receipt Date: 20160830
  Transmission Date: 20161109
  Serious: Yes (Other)
  Sender: FDA-Public Use
  Company Number: US-COL_23727_2016

PATIENT
  Age: 52 Year
  Sex: Female

DRUGS (1)
  1. COLGATE TOTAL ADVANCED WHITENING [Suspect]
     Active Substance: SODIUM FLUORIDE\TRICLOSAN
     Indication: PRODUCT USED FOR UNKNOWN INDICATION
     Dosage: FULL LENGTH OF ELECTRIC TOOTHBRUSH/3 TO 4 TIMES PER DAY
     Route: 048

REACTIONS (1)
  - Hypothyroidism [Not Recovered/Not Resolved]
